FAERS Safety Report 4881971-6 (Version None)
Quarter: 2006Q1

REPORT INFORMATION
  Report Type: 
  Country: None (occurrence: None)
  Receive Date: 20060117
  Receipt Date: 20060113
  Transmission Date: 20060701
  Serious: Yes (Hospitalization)
  Sender: FDA-Public Use
  Company Number: 431106

PATIENT
  Sex: Female

DRUGS (3)
  1. DILATREND [Suspect]
     Indication: DRUG USE FOR UNKNOWN INDICATION
     Route: 048
  2. PROPRANOLOL [Concomitant]
  3. HYDROCHLOROTHIAZIDE + LOSARTAN [Concomitant]

REACTIONS (3)
  - HEADACHE [None]
  - HOT FLUSH [None]
  - VISION BLURRED [None]
